FAERS Safety Report 9251799 (Version 1)
Quarter: 2013Q1

REPORT INFORMATION
  Report Type: Spontaneous
  Country: US (occurrence: None)
  Receive Date: 20130305
  Receipt Date: 20130305
  Transmission Date: 20140127
  Serious: Yes (Other)
  Sender: FDA-Public Use
  Company Number: 163-21880-12092668

PATIENT
  Age: 71 Year
  Sex: Male

DRUGS (2)
  1. REVLIMID (LENALIDOMIDE) [Suspect]
     Route: 048
     Dates: start: 20090324
  2. METFORMIN HCL (METFORMIN HYDROCHLORIDE) [Concomitant]

REACTIONS (1)
  - Drug ineffective [None]
